FAERS Safety Report 12501173 (Version 3)
Quarter: 2016Q3

REPORT INFORMATION
  Report Type: Report from Study
  Country: KR (occurrence: KR)
  Receive Date: 20160627
  Receipt Date: 20160927
  Transmission Date: 20161109
  Serious: Yes (Hospitalization, Other)
  Sender: FDA-Public Use
  Company Number: KR-ELI_LILLY_AND_COMPANY-KR201606004825

PATIENT
  Age: 57 Year
  Sex: Male
  Weight: 65 kg

DRUGS (4)
  1. CYRAMZA [Suspect]
     Active Substance: RAMUCIRUMAB
     Indication: ADENOCARCINOMA GASTRIC
     Dosage: 8 MG, 2/M
     Route: 042
     Dates: start: 20150910
  2. CYRAMZA [Suspect]
     Active Substance: RAMUCIRUMAB
     Indication: OESOPHAGEAL ADENOCARCINOMA
  3. PACLITAXEL. [Concomitant]
     Active Substance: PACLITAXEL
     Indication: ADENOCARCINOMA GASTRIC
     Dosage: UNK
     Dates: start: 20150910
  4. PACLITAXEL. [Concomitant]
     Active Substance: PACLITAXEL
     Indication: OESOPHAGEAL ADENOCARCINOMA

REACTIONS (6)
  - Hyponatraemia [Recovering/Resolving]
  - Neutrophil count decreased [Recovering/Resolving]
  - Ascites [Recovering/Resolving]
  - Asthenia [Not Recovered/Not Resolved]
  - Abasia [Unknown]
  - White blood cell count decreased [Unknown]

NARRATIVE: CASE EVENT DATE: 20160612
